FAERS Safety Report 8570462-7 (Version None)
Quarter: 2012Q3

REPORT INFORMATION
  Report Type: 
  Country: None (occurrence: None)
  Receive Date: 20120803
  Receipt Date: 20120725
  Transmission Date: 20120928
  Serious: Yes (Hospitalization)
  Sender: FDA-Public Use
  Company Number: US-ASTRAZENECA-2011SE41375

PATIENT
  Age: 69 Year
  Sex: Female

DRUGS (8)
  1. PRILOSEC [Suspect]
     Route: 048
  2. NEXIUM [Suspect]
     Route: 048
  3. BLADDER MEDICATION [Suspect]
     Route: 065
  4. PRILOSEC OTC [Suspect]
     Route: 048
  5. PROSED [Concomitant]
  6. URIBEL [Concomitant]
  7. LEVAQUIN [Concomitant]
  8. ZANTAC [Concomitant]

REACTIONS (15)
  - APHAGIA [None]
  - DYSURIA [None]
  - WEIGHT DECREASED [None]
  - HEART RATE INCREASED [None]
  - URETHRAL SPASM [None]
  - BLADDER DISORDER [None]
  - GASTROOESOPHAGEAL REFLUX DISEASE [None]
  - GASTRITIS [None]
  - DRUG INEFFECTIVE [None]
  - URINARY TRACT INFECTION [None]
  - DYSPEPSIA [None]
  - FEELING ABNORMAL [None]
  - DRUG DOSE OMISSION [None]
  - PAIN [None]
  - CYSTITIS [None]
